FAERS Safety Report 7472684-5 (Version None)
Quarter: 2011Q2

REPORT INFORMATION
  Report Type: 
  Country: None (occurrence: None)
  Receive Date: 20110511
  Receipt Date: 20110428
  Transmission Date: 20111010
  Serious: Yes (Death, Life-Threatening)
  Sender: FDA-Public Use
  Company Number: CZ-CELGENEUS-217-C5013-11021593

PATIENT
  Age: 77 Year
  Sex: Female

DRUGS (24)
  1. NEUPOGEN [Concomitant]
     Indication: NEUTROPENIA
     Route: 058
     Dates: start: 20081203, end: 20081207
  2. NEUPOGEN [Concomitant]
     Route: 058
     Dates: start: 20091223, end: 20100203
  3. LENALIDOMIDE [Suspect]
     Indication: MULTIPLE MYELOMA
     Route: 048
     Dates: start: 20091125, end: 20100112
  4. MELPHALAN HYDROCHLORIDE [Suspect]
     Indication: MULTIPLE MYELOMA
     Route: 065
     Dates: start: 20080709, end: 20090221
  5. ZOMETA [Concomitant]
     Route: 048
     Dates: start: 20080101, end: 20100217
  6. BETALOC [Concomitant]
     Route: 048
     Dates: start: 20040101
  7. PANGDOL [Concomitant]
     Indication: CONSTIPATION
     Route: 048
     Dates: start: 20081006
  8. TRITACE [Concomitant]
     Route: 048
     Dates: start: 20080723
  9. HELICID [Concomitant]
     Indication: PROPHYLAXIS
     Route: 048
     Dates: start: 20050501
  10. LETROX [Concomitant]
     Indication: HYPOTHYROIDISM
     Route: 048
  11. NEUPOGEN [Concomitant]
     Route: 058
     Dates: start: 20100217
  12. LENALIDOMIDE [Suspect]
     Indication: MULTIPLE MYELOMA
     Route: 048
     Dates: start: 20080709, end: 20091115
  13. DIGOXIN [Concomitant]
     Route: 048
     Dates: start: 19750101
  14. ARANESP [Concomitant]
     Indication: ANAEMIA
     Route: 058
     Dates: start: 20091224
  15. FLONDAN [Concomitant]
     Route: 048
     Dates: start: 20080901
  16. STILNOX [Concomitant]
     Indication: INSOMNIA
     Route: 048
     Dates: start: 20080929
  17. GODASAL [Concomitant]
     Indication: THROMBOSIS PROPHYLAXIS
     Route: 048
     Dates: start: 20080716
  18. EUPHYLLIN [Concomitant]
     Route: 048
  19. LOREM [Concomitant]
     Route: 048
     Dates: start: 20080910
  20. PREDNISONE TAB [Suspect]
     Indication: MULTIPLE MYELOMA
     Route: 065
     Dates: start: 20080709, end: 20090221
  21. ADVAIR HFA [Concomitant]
     Route: 055
     Dates: start: 20050101
  22. NEUPOGEN [Concomitant]
     Route: 058
     Dates: start: 20090128, end: 20090130
  23. GANATON [Concomitant]
     Indication: CONSTIPATION
     Route: 048
     Dates: start: 20080910
  24. COXTRAL [Concomitant]
     Indication: BONE PAIN
     Route: 048
     Dates: start: 20080609

REACTIONS (2)
  - MYELODYSPLASTIC SYNDROME [None]
  - SEPSIS [None]
